FAERS Safety Report 10057120 (Version 1)
Quarter: 2014Q2

REPORT INFORMATION
  Report Type: Not Available
  Country: FR (occurrence: FR)
  Receive Date: 20140403
  Receipt Date: 20140403
  Transmission Date: 20141212
  Serious: Yes (Life-Threatening, Hospitalization)
  Sender: FDA-Public Use
  Company Number: FR-NAPPMUNDI-GBR-2014-0017648

PATIENT
  Age: 99 Year
  Sex: Male

DRUGS (7)
  1. OXYCONTIN LP, COMPRIME PELLICULE A LIBERATION PROLONGEE [Suspect]
     Indication: PRODUCT USED FOR UNKNOWN INDICATION
     Dosage: UNK
     Route: 048
     Dates: start: 20131109, end: 20131110
  2. OXYNORM 5 MG, GELULE [Suspect]
     Indication: PRODUCT USED FOR UNKNOWN INDICATION
     Dosage: 5 MG, Q6H
     Route: 048
     Dates: start: 20131109, end: 20131110
  3. ZYPREXA [Concomitant]
     Dosage: 5 MG, UNK
  4. CYMBALTA [Concomitant]
  5. ANAFRANIL [Concomitant]
  6. URBANYL [Concomitant]
  7. TARDYFERON [Concomitant]

REACTIONS (2)
  - Acute respiratory failure [Unknown]
  - Somnolence [Unknown]
